FAERS Safety Report 4455649-7 (Version None)
Quarter: 2004Q3

REPORT INFORMATION
  Report Type: 
  Country: None (occurrence: None)
  Receive Date: 20040922
  Receipt Date: 20040910
  Transmission Date: 20050211
  Serious: Yes (Other)
  Sender: FDA-Public Use
  Company Number: PHEH2004US09773

PATIENT
  Age: 60 Year
  Sex: Female

DRUGS (4)
  1. FEMARA [Suspect]
     Indication: BREAST CANCER
     Dosage: 2.5 MG, QD
     Dates: start: 20040501, end: 20040801
  2. M.V.I. [Concomitant]
  3. PRAVACHOL [Concomitant]
  4. VITAMIN C [Concomitant]

REACTIONS (5)
  - CHEST DISCOMFORT [None]
  - DIZZINESS [None]
  - FOAMING AT MOUTH [None]
  - LOSS OF CONSCIOUSNESS [None]
  - RESPIRATORY ARREST [None]
